FAERS Safety Report 7072564-3 (Version None)
Quarter: 2010Q4

REPORT INFORMATION
  Report Type: 
  Country: None (occurrence: None)
  Receive Date: 20101029
  Receipt Date: 20100212
  Transmission Date: 20110411
  Serious: No
  Sender: FDA-Public Use
  Company Number: A0844260A

PATIENT
  Age: 80 Year
  Sex: Male

DRUGS (9)
  1. ADVAIR DISKUS 100/50 [Suspect]
     Dosage: 1PUFF TWICE PER DAY
     Route: 055
     Dates: start: 20100115, end: 20100207
  2. LEVOTHYROXINE [Concomitant]
  3. TRICOR [Concomitant]
  4. PRAVASTATIN [Concomitant]
  5. TERAZOSIN HCL [Concomitant]
  6. MICARDIS [Concomitant]
  7. LYRICA [Concomitant]
  8. METANX [Concomitant]
  9. VENTOLIN [Concomitant]

REACTIONS (4)
  - BLOOD PRESSURE INCREASED [None]
  - ERYTHEMA [None]
  - PRURITUS [None]
  - RASH [None]
